FAERS Safety Report 15412942 (Version 1)
Quarter: 2018Q3

REPORT INFORMATION
  Report Type: Spontaneous
  Country: US (occurrence: US)
  Receive Date: 20180921
  Receipt Date: 20180921
  Transmission Date: 20181010
  Serious: Yes (Other)
  Sender: FDA-Public Use
  Company Number: US-BIOCOMPATIBLES UK LTD-2018BTG01782

PATIENT
  Age: 81 Year
  Sex: Male

DRUGS (2)
  1. CROFAB [Suspect]
     Active Substance: CROTALIDAE POLYVALENT IMMUNE FAB (OVINE)
     Indication: SNAKE BITE
     Dosage: 4 VIALS, UNK
     Dates: start: 20180910
  2. CROFAB [Suspect]
     Active Substance: CROTALIDAE POLYVALENT IMMUNE FAB (OVINE)
     Dosage: 4 VIALS, SINGLE
     Dates: start: 20180911

REACTIONS (10)
  - Pruritus [Unknown]
  - Peripheral swelling [Recovering/Resolving]
  - Flushing [Unknown]
  - Tenderness [Recovering/Resolving]
  - Erythema [Not Recovered/Not Resolved]
  - Bradycardia [Unknown]
  - Presyncope [Unknown]
  - Skin discolouration [Not Recovered/Not Resolved]
  - Hypotension [Unknown]
  - Therapy cessation [Unknown]

NARRATIVE: CASE EVENT DATE: 20180910
